FAERS Safety Report 6190296-0 (Version None)
Quarter: 2009Q2

REPORT INFORMATION
  Report Type: 
  Country: None (occurrence: None)
  Receive Date: 20090514
  Receipt Date: 20090506
  Transmission Date: 20091009
  Serious: Yes (Life-Threatening, Hospitalization, Disabling, Other)
  Sender: FDA-Public Use
  Company Number: A0782775A

PATIENT
  Age: 57 Year
  Sex: Female

DRUGS (7)
  1. IMITREX [Suspect]
     Dosage: 100MG AS REQUIRED
     Route: 048
     Dates: start: 20070101
  2. CYMBALTA [Concomitant]
  3. HYDROXYZINE [Concomitant]
  4. ROZEREM [Concomitant]
  5. TIZANIDINE HCL [Concomitant]
  6. NEXIUM [Concomitant]
  7. LEVOTHYROXINE SODIUM [Concomitant]

REACTIONS (1)
  - LARGE INTESTINE PERFORATION [None]
